FAERS Safety Report 23805493 (Version 2)
Quarter: 2024Q3

REPORT INFORMATION
  Report Type: Spontaneous
  Country: JP (occurrence: JP)
  Receive Date: 20240502
  Receipt Date: 20240701
  Transmission Date: 20241017
  Serious: Yes (Other)
  Sender: AMGEN
  Company Number: JP-TAKEDA-2024TJP006206

PATIENT
  Age: 8 Decade
  Sex: Male

DRUGS (1)
  1. VECTIBIX [Suspect]
     Active Substance: PANITUMUMAB
     Indication: Product used for unknown indication
     Dosage: UNK
     Route: 042
     Dates: start: 20240115

REACTIONS (1)
  - Neuropathy peripheral [Unknown]
